FAERS Safety Report 14032962 (Version 2)
Quarter: 2017Q4

REPORT INFORMATION
  Report Type: Report from Study
  Country: DE (occurrence: DE)
  Receive Date: 20171002
  Receipt Date: 20171016
  Transmission Date: 20180321
  Serious: Yes (Hospitalization)
  Sender: FDA-Public Use
  Company Number: PHHY2017DE143127

PATIENT
  Age: 70 Year
  Sex: Male

DRUGS (1)
  1. EXTAVIA [Suspect]
     Active Substance: INTERFERON BETA-1B
     Indication: MULTIPLE SCLEROSIS
     Dosage: 1 DF (1.0 ML/250 UG/ML), QOD
     Route: 058
     Dates: start: 20101009

REACTIONS (8)
  - Diplegia [Unknown]
  - Mass [Unknown]
  - Micturition disorder [Unknown]
  - Pulmonary embolism [Unknown]
  - Cystitis [Recovered/Resolved]
  - Pyrexia [Unknown]
  - Thrombosis [Unknown]
  - Fall [Unknown]

NARRATIVE: CASE EVENT DATE: 20170901
